FAERS Safety Report 5752508-4 (Version None)
Quarter: 2008Q2

REPORT INFORMATION
  Report Type: 
  Country: None (occurrence: None)
  Receive Date: 20080529
  Receipt Date: 20080415
  Transmission Date: 20081010
  Serious: No
  Sender: FDA-Public Use
  Company Number: US-BAYER-200810059BCC

PATIENT
  Age: 29 Year
  Sex: Female
  Weight: 66 kg

DRUGS (1)
  1. ALEVE [Suspect]
     Indication: DYSMENORRHOEA
     Dosage: TOTAL DAILY DOSE: 220 MG  UNIT DOSE: 220 MG
     Route: 048
     Dates: start: 20071227

REACTIONS (4)
  - HYPERSENSITIVITY [None]
  - LIP SWELLING [None]
  - PRURITUS [None]
  - SWELLING FACE [None]
